FAERS Safety Report 9081659 (Version 2)
Quarter: 2013Q3

REPORT INFORMATION
  Report Type: Spontaneous
  Country: GB (occurrence: GB)
  Receive Date: 20130130
  Receipt Date: 20130930
  Transmission Date: 20140515
  Serious: Yes (Hospitalization, Disabling)
  Sender: FDA-Public Use
  Company Number: PHHY2013GB006705

PATIENT
  Age: 40 Year
  Sex: Male
  Weight: 77 kg

DRUGS (14)
  1. CITALOPRAM HYDROBROMIDE [Suspect]
     Indication: ANXIETY
     Dosage: 10 MG
     Route: 048
     Dates: start: 20121111
  2. CITALOPRAM HYDROBROMIDE [Suspect]
     Dosage: 20 MG
     Route: 048
     Dates: end: 20130104
  3. DOXYCYCLINE [Concomitant]
  4. FISH OIL CONCENTRATE [Concomitant]
     Indication: LIPIDS ABNORMAL
  5. LEVOMENTHOL [Concomitant]
  6. GLUCOSAMIN CHONDROITIN [Concomitant]
     Indication: LIPIDS ABNORMAL
  7. PARACETAMOL [Concomitant]
  8. INSULIN HUMAN [Concomitant]
  9. DEXTROMETHORPHAN HYDROBROMIDE [Concomitant]
  10. DIPHENHYDRAMINE HYDROCHLORIDE [Concomitant]
  11. PROMETHAZINE [Concomitant]
  12. COENZYME Q10 [Concomitant]
  13. ECHINACEA [Concomitant]
  14. NIACIN [Concomitant]
     Indication: LIPIDS ABNORMAL

REACTIONS (6)
  - Prothrombin level abnormal [Unknown]
  - Headache [Not Recovered/Not Resolved]
  - Libido decreased [Recovered/Resolved]
  - Haemorrhage [Recovering/Resolving]
  - Nausea [Not Recovered/Not Resolved]
  - Insomnia [Not Recovered/Not Resolved]
